FAERS Safety Report 12604713 (Version 1)
Quarter: 2016Q3

REPORT INFORMATION
  Report Type: Spontaneous
  Country: NZ (occurrence: NZ)
  Receive Date: 20160728
  Receipt Date: 20160728
  Transmission Date: 20161109
  Serious: Yes (Other)
  Sender: FDA-Public Use
  Company Number: NZ-BAUSCH-BL-2016-017964

PATIENT
  Age: 25 Year
  Sex: Female

DRUGS (4)
  1. PARAFFIN [Concomitant]
     Active Substance: PARAFFIN
     Indication: KERATORHEXIS
  2. POLYETHYLENE GLYCOL 0.4% [Concomitant]
     Indication: KERATORHEXIS
  3. DEXAMETHASONE 0.1% [Suspect]
     Active Substance: DEXAMETHASONE
     Indication: KERATORHEXIS
     Route: 065
  4. PROPYLENE GLYCOL 0.3% [Concomitant]
     Indication: KERATORHEXIS

REACTIONS (5)
  - Corneal perforation [None]
  - Hypopyon [None]
  - Streptococcus test positive [None]
  - Keratitis [Unknown]
  - Corneal graft rejection [None]
